FAERS Safety Report 23261328 (Version 6)
Quarter: 2025Q3

REPORT INFORMATION
  Report Type: Spontaneous
  Country: EU (occurrence: EU)
  Receive Date: 20231205
  Receipt Date: 20250812
  Transmission Date: 20251021
  Serious: Yes (Death, Life-Threatening, Other)
  Sender: ALEXION PHARMACEUTICALS
  Company Number: None

PATIENT
  Age: 62 Year
  Sex: Male

DRUGS (57)
  1. TICAGRELOR [Interacting]
     Active Substance: TICAGRELOR
     Indication: Infarction
     Dates: start: 20231027, end: 20231027
  2. ARIXTRA [Interacting]
     Active Substance: FONDAPARINUX SODIUM
     Indication: Infarction
  3. ARIXTRA [Interacting]
     Active Substance: FONDAPARINUX SODIUM
     Indication: Infarction
  4. ARIXTRA [Interacting]
     Active Substance: FONDAPARINUX SODIUM
     Indication: Infarction
  5. ARIXTRA [Interacting]
     Active Substance: FONDAPARINUX SODIUM
     Indication: Infarction
  6. HEPARIN SODIUM [Interacting]
     Active Substance: HEPARIN SODIUM
     Indication: Infarction
  7. DICLOFENAC SODIUM [Interacting]
     Active Substance: DICLOFENAC SODIUM
     Indication: Back pain
     Dosage: 50 MG, QD
     Dates: start: 20231013
  8. KARDEGIC [Interacting]
     Active Substance: ASPIRIN DL-LYSINE
     Indication: Cardiovascular event prophylaxis
     Dosage: 1 DOSAGE FORM, QD (POUDRE POUR SOLUTION BUVABLE EN SACHET DOSE)
     Dates: start: 2023, end: 2023
  9. METHYLPREDNISOLONE [Interacting]
     Active Substance: METHYLPREDNISOLONE
     Indication: Back pain
     Dosage: 48 MG, QD
     Dates: start: 20231013, end: 20231016
  10. METHYLPREDNISOLONE [Interacting]
     Active Substance: METHYLPREDNISOLONE
     Dosage: 32 MG, QD
     Dates: start: 20231017, end: 20231021
  11. METHYLPREDNISOLONE [Interacting]
     Active Substance: METHYLPREDNISOLONE
     Dosage: 16 MG, QD
     Dates: start: 20231022, end: 20231026
  12. NAPROXEN [Interacting]
     Active Substance: NAPROXEN
     Indication: Back pain
     Dosage: 550 MG, QD(IN THE EVENING)
     Dates: start: 20231013
  13. MEDROL [Interacting]
     Active Substance: METHYLPREDNISOLONE
     Indication: Back pain
     Dates: start: 20231013, end: 20231016
  14. MEDROL [Interacting]
     Active Substance: METHYLPREDNISOLONE
     Indication: Back pain
     Dates: start: 20231017, end: 20231021
  15. MEDROL [Interacting]
     Active Substance: METHYLPREDNISOLONE
     Indication: Back pain
     Dates: start: 20231022, end: 20231026
  16. MEDROL [Interacting]
     Active Substance: METHYLPREDNISOLONE
     Indication: Back pain
     Dosage: 48 MG, QD
     Dates: start: 20231013, end: 20231016
  17. MEDROL [Interacting]
     Active Substance: METHYLPREDNISOLONE
     Dosage: 32 MG, QD
     Dates: start: 20231017, end: 20231021
  18. MEDROL [Interacting]
     Active Substance: METHYLPREDNISOLONE
     Dosage: 16 MG, QD
     Dates: start: 20231022, end: 20231026
  19. CANDESARTAN CILEXETIL [Concomitant]
     Active Substance: CANDESARTAN CILEXETIL
     Indication: Product used for unknown indication
     Dosage: 32 MG, QD
  20. CANDESARTAN CILEXETIL [Concomitant]
     Active Substance: CANDESARTAN CILEXETIL
     Indication: Product used for unknown indication
     Dosage: 32 MG, QD, 16MG IN THE EVENING
  21. DAPAGLIFLOZIN [Concomitant]
     Active Substance: DAPAGLIFLOZIN
     Indication: Product used for unknown indication
     Dosage: 10 MG, QD (COMPRIME PELLICULE)
  22. DAPAGLIFLOZIN [Concomitant]
     Active Substance: DAPAGLIFLOZIN
     Indication: Product used for unknown indication
     Dosage: 10 MG, QD
  23. METFORMIN HYDROCHLORIDE\SAXAGLIPTIN [Concomitant]
     Active Substance: METFORMIN HYDROCHLORIDE\SAXAGLIPTIN
     Indication: Product used for unknown indication
     Dosage: 2 DOSAGE FORM, QD (COMPRIME PELLICULE)
  24. METFORMIN HYDROCHLORIDE\SAXAGLIPTIN [Concomitant]
     Active Substance: METFORMIN HYDROCHLORIDE\SAXAGLIPTIN
     Indication: Product used for unknown indication
     Dosage: 2 DF, QD
  25. NITRENDIPINE [Concomitant]
     Active Substance: NITRENDIPINE
     Indication: Product used for unknown indication
     Dosage: 20 MG, QD
  26. NITRENDIPINE [Concomitant]
     Active Substance: NITRENDIPINE
     Indication: Product used for unknown indication
     Dosage: 20 MG, QD, IN THE MORNING
  27. HYDROCHLOROTHIAZIDE [Concomitant]
     Active Substance: HYDROCHLOROTHIAZIDE
     Indication: Product used for unknown indication
     Dosage: 12.5 MG, QD
  28. HYDROCHLOROTHIAZIDE [Concomitant]
     Active Substance: HYDROCHLOROTHIAZIDE
     Indication: Product used for unknown indication
     Dosage: 12.5 MG, QD
  29. REPAGLINIDE [Concomitant]
     Active Substance: REPAGLINIDE
     Indication: Product used for unknown indication
     Route: 065
  30. REPAGLINIDE [Concomitant]
     Active Substance: REPAGLINIDE
  31. REPAGLINIDE [Concomitant]
     Active Substance: REPAGLINIDE
  32. REPAGLINIDE [Concomitant]
     Active Substance: REPAGLINIDE
  33. REPAGLINIDE [Concomitant]
     Active Substance: REPAGLINIDE
  34. REPAGLINIDE [Concomitant]
     Active Substance: REPAGLINIDE
  35. ACETAMINOPHEN\CAFFEINE [Concomitant]
     Active Substance: ACETAMINOPHEN\CAFFEINE
     Indication: Product used for unknown indication
  36. ACETAMINOPHEN\CAFFEINE [Concomitant]
     Active Substance: ACETAMINOPHEN\CAFFEINE
  37. ACETAMINOPHEN\CAFFEINE [Concomitant]
     Active Substance: ACETAMINOPHEN\CAFFEINE
  38. ACETAMINOPHEN\CAFFEINE [Concomitant]
     Active Substance: ACETAMINOPHEN\CAFFEINE
  39. ACETAMINOPHEN\CAFFEINE [Concomitant]
     Active Substance: ACETAMINOPHEN\CAFFEINE
  40. ACETAMINOPHEN\CAFFEINE [Concomitant]
     Active Substance: ACETAMINOPHEN\CAFFEINE
  41. ACETAMINOPHEN\CAFFEINE [Concomitant]
     Active Substance: ACETAMINOPHEN\CAFFEINE
     Route: 065
  42. ACETAMINOPHEN\CAFFEINE [Concomitant]
     Active Substance: ACETAMINOPHEN\CAFFEINE
     Route: 065
  43. ACETAMINOPHEN\CAFFEINE [Concomitant]
     Active Substance: ACETAMINOPHEN\CAFFEINE
     Route: 065
  44. DICLOFENAC [Interacting]
     Active Substance: DICLOFENAC
     Indication: Back pain
     Dosage: 50 MG, QD
     Dates: start: 20231013
  45. DICLOFENAC [Interacting]
     Active Substance: DICLOFENAC
     Indication: Back pain
  46. DICLOFENAC [Interacting]
     Active Substance: DICLOFENAC
     Indication: Back pain
  47. DICLOFENAC [Interacting]
     Active Substance: DICLOFENAC
     Indication: Back pain
  48. NAPROXEN [Interacting]
     Active Substance: NAPROXEN
     Indication: Back pain
     Dates: start: 20231013
  49. NAPROXEN [Interacting]
     Active Substance: NAPROXEN
     Indication: Back pain
     Dosage: 550 MG, QD
     Dates: start: 20231013
  50. NAPROXEN [Interacting]
     Active Substance: NAPROXEN
     Indication: Back pain
  51. NAPROXEN [Interacting]
     Active Substance: NAPROXEN
     Indication: Back pain
  52. ROSUVASTATIN [Concomitant]
     Active Substance: ROSUVASTATIN
     Indication: Product used for unknown indication
  53. ROSUVASTATIN [Concomitant]
     Active Substance: ROSUVASTATIN
     Dosage: 10 MG, QD
  54. TICAGRELOR [Interacting]
     Active Substance: TICAGRELOR
     Indication: Infarction
     Dates: start: 20231027, end: 20231027
  55. HEPARIN SODIUM [Interacting]
     Active Substance: HEPARIN SODIUM
     Indication: Infarction
  56. HEPARIN SODIUM [Interacting]
     Active Substance: HEPARIN SODIUM
     Indication: Infarction
  57. HEPARIN SODIUM [Interacting]
     Active Substance: HEPARIN SODIUM
     Indication: Infarction

REACTIONS (4)
  - Pulmonary embolism [Fatal]
  - Gastroduodenal ulcer [Fatal]
  - Shock haemorrhagic [Fatal]
  - Drug interaction [Fatal]

NARRATIVE: CASE EVENT DATE: 20231027
